FAERS Safety Report 11029776 (Version 1)
Quarter: 2015Q2

REPORT INFORMATION
  Report Type: Spontaneous
  Country: US (occurrence: None)
  Receive Date: 20150413
  Receipt Date: 20150413
  Transmission Date: 20150821
  Serious: Yes (Other)
  Sender: FDA-Public Use
  Company Number: 2015JUB00095

PATIENT
  Age: 54 Year
  Sex: Male

DRUGS (4)
  1. WINE (ETHANOL) [Concomitant]
  2. PREDNISONE (PREDNISONE) UNKNOWN [Suspect]
     Active Substance: PREDNISONE
     Indication: RHEUMATOID ARTHRITIS
  3. PREDNISONE (PREDNISONE) UNKNOWN [Suspect]
     Active Substance: PREDNISONE
     Indication: ASTHMA
  4. UNSPECIFIED IMMUNOSUPPRESSIVES (UNSPECIFIED) [Concomitant]

REACTIONS (2)
  - Asthma [None]
  - Chorioretinopathy [None]
